FAERS Safety Report 18202149 (Version 5)
Quarter: 2023Q1

REPORT INFORMATION
  Report Type: Spontaneous
  Country: US (occurrence: US)
  Receive Date: 20200827
  Receipt Date: 20230210
  Transmission Date: 20230417
  Serious: No
  Sender: FDA-Public Use
  Company Number: US-PFIZER INC-2020330788

PATIENT
  Age: 53 Year
  Sex: Female

DRUGS (1)
  1. IBRANCE [Suspect]
     Active Substance: PALBOCICLIB
     Indication: Breast cancer stage IV
     Dosage: 125 MG

REACTIONS (2)
  - Neoplasm progression [Unknown]
  - Appetite disorder [Recovered/Resolved]

NARRATIVE: CASE EVENT DATE: 20200701
